FAERS Safety Report 16461785 (Version 7)
Quarter: 2021Q2

REPORT INFORMATION
  Report Type: Spontaneous
  Country: US (occurrence: US)
  Receive Date: 20190621
  Receipt Date: 20210513
  Transmission Date: 20210716
  Serious: Yes (Other)
  Sender: FDA-Public Use
  Company Number: US-GLAXOSMITHKLINE-US2019GSK109833

PATIENT
  Age: 86 Year
  Sex: Male

DRUGS (5)
  1. PREVACID [Suspect]
     Active Substance: LANSOPRAZOLE
     Indication: GASTROOESOPHAGEAL REFLUX DISEASE
     Dosage: 15 MG, QD
     Route: 065
  2. OMEPRAZOLE. [Suspect]
     Active Substance: OMEPRAZOLE
     Indication: GASTROOESOPHAGEAL REFLUX DISEASE
     Dosage: 20 MG, BID
     Route: 048
  3. RANITIDINE. [Suspect]
     Active Substance: RANITIDINE
     Indication: PRODUCT USED FOR UNKNOWN INDICATION
     Dosage: 150 MG, QD
     Route: 065
  4. PREVACID [Suspect]
     Active Substance: LANSOPRAZOLE
     Dosage: UNK, BID
     Route: 065
  5. PREVACID 24 HR [Suspect]
     Active Substance: LANSOPRAZOLE
     Indication: GASTROOESOPHAGEAL REFLUX DISEASE
     Dosage: UNK, BID
     Route: 048

REACTIONS (22)
  - Chronic kidney disease [Not Recovered/Not Resolved]
  - Renal failure [Unknown]
  - Proteinuria [Unknown]
  - Diabetic nephropathy [Unknown]
  - Renal vessel disorder [Unknown]
  - Dialysis [Unknown]
  - Bladder neck obstruction [Unknown]
  - Haemoglobinuria [Unknown]
  - Hyperchlorhydria [Unknown]
  - Urinary tract disorder [Unknown]
  - Renal impairment [Unknown]
  - Urinary incontinence [Unknown]
  - Urinary hesitation [Unknown]
  - Nephropathy [Unknown]
  - Myoglobinuria [Unknown]
  - Nephrogenic anaemia [Unknown]
  - Glycosuria [Unknown]
  - Urine flow decreased [Unknown]
  - Renal injury [Unknown]
  - Acute kidney injury [Recovering/Resolving]
  - Urine abnormality [Unknown]
  - Rebound effect [Unknown]

NARRATIVE: CASE EVENT DATE: 2010
